FAERS Safety Report 12754382 (Version 1)
Quarter: 2016Q3

REPORT INFORMATION
  Report Type: Spontaneous
  Country: ES (occurrence: ES)
  Receive Date: 20160916
  Receipt Date: 20160916
  Transmission Date: 20161109
  Serious: Yes (Hospitalization, Other)
  Sender: FDA-Public Use
  Company Number: PHHY2016ES104373

PATIENT
  Sex: Female

DRUGS (1)
  1. AFINITOR [Suspect]
     Active Substance: EVEROLIMUS
     Indication: BREAST CANCER
     Dosage: 5 MG, UNK
     Route: 065
     Dates: start: 20160229, end: 20160726

REACTIONS (4)
  - Tachycardia [Recovered/Resolved]
  - Dyspnoea [Unknown]
  - Pulmonary embolism [Recovered/Resolved]
  - Pulmonary infarction [Unknown]

NARRATIVE: CASE EVENT DATE: 20160726
